FAERS Safety Report 10229384 (Version 3)
Quarter: 2014Q2

REPORT INFORMATION
  Report Type: Report from Study
  Country: GB (occurrence: GB)
  Receive Date: 20140611
  Receipt Date: 20140630
  Transmission Date: 20141212
  Serious: Yes (Other)
  Sender: FDA-Public Use
  Company Number: GB-ROCHE-1416439

PATIENT
  Age: 52 Year
  Sex: Female

DRUGS (1)
  1. BEVACIZUMAB [Suspect]
     Indication: MALIGNANT MELANOMA
     Dosage: LAST DATE OF STUDY TREATMENT BEFORE SAE: 26/MAR/2009 AND ON 20/APR/2009: ATTENDED CYCLE 4.
     Route: 065
     Dates: start: 20090212

REACTIONS (1)
  - Gamma-glutamyltransferase increased [Recovered/Resolved]
